FAERS Safety Report 10634508 (Version 3)
Quarter: 2015Q1

REPORT INFORMATION
  Report Type: Spontaneous
  Country: US (occurrence: US)
  Receive Date: 20141205
  Receipt Date: 20150316
  Transmission Date: 20150720
  Serious: No
  Sender: FDA-Public Use
  Company Number: US-ASTELLAS-2014US014859

PATIENT
  Age: 85 Year
  Sex: Male

DRUGS (4)
  1. XTANDI [Suspect]
     Active Substance: ENZALUTAMIDE
     Route: 048
     Dates: start: 20141013
  2. XTANDI [Suspect]
     Active Substance: ENZALUTAMIDE
     Dosage: BETWEEN 80-120 MG, ONCE DAILY
     Route: 048
  3. XTANDI [Suspect]
     Active Substance: ENZALUTAMIDE
     Indication: PROSTATE CANCER
     Route: 048
     Dates: start: 20141010
  4. XTANDI [Suspect]
     Active Substance: ENZALUTAMIDE
     Dosage: 60 MG + 40 MG (ALTERNATING)
     Route: 048

REACTIONS (12)
  - Insomnia [Unknown]
  - Osteoarthritis [Recovered/Resolved]
  - Influenza like illness [Recovered/Resolved]
  - Chest discomfort [Recovered/Resolved]
  - Malaise [Unknown]
  - Panic attack [Recovered/Resolved]
  - Pain [Unknown]
  - Myalgia [Recovered/Resolved]
  - Drug dose omission [Unknown]
  - Fatigue [Unknown]
  - Agitation [Unknown]
  - Nervousness [Unknown]

NARRATIVE: CASE EVENT DATE: 20141010
